FAERS Safety Report 8832404 (Version 2)
Quarter: 2014Q3

REPORT INFORMATION
  Report Type: Report from Study
  Country: US (occurrence: US)
  Receive Date: 20121009
  Receipt Date: 20140822
  Transmission Date: 20150326
  Serious: Yes (Other)
  Sender: FDA-Public Use
  Company Number: US-ROCHE-1136165

PATIENT
  Sex: Male

DRUGS (3)
  1. RITUXAN [Suspect]
     Active Substance: RITUXIMAB
     Indication: THROMBOCYTOPENIA
     Route: 042
     Dates: start: 20010508
  2. RITUXAN [Suspect]
     Active Substance: RITUXIMAB
     Indication: OFF LABEL USE
  3. DANOCRINE [Concomitant]
     Active Substance: DANAZOL
     Route: 065

REACTIONS (4)
  - Platelet count decreased [Unknown]
  - Immune thrombocytopenic purpura [Unknown]
  - Hypertension [Unknown]
  - Oedema peripheral [Unknown]
